FAERS Safety Report 8842894 (Version 1)
Quarter: 2012Q4

REPORT INFORMATION
  Report Type: 
  Country: US (occurrence: US)
  Receive Date: 20121016
  Receipt Date: 20121016
  Transmission Date: 20130627
  Serious: Yes (Life-Threatening, Hospitalization, Other)
  Sender: FDA-Public Use
  Company Number: US-ASTRAZENECA-2012SE78564

PATIENT
  Age: 21 Year
  Sex: Male
  Weight: 64.4 kg

DRUGS (3)
  1. SEROQUEL XR [Suspect]
     Route: 048
     Dates: start: 201203, end: 201203
  2. SEROQUEL XR [Suspect]
     Route: 048
  3. XANAX [Concomitant]
     Indication: ANXIETY
     Dates: start: 2010

REACTIONS (5)
  - Neuroleptic malignant syndrome [Unknown]
  - Loss of consciousness [Unknown]
  - Convulsion [Unknown]
  - Mental impairment [Unknown]
  - Memory impairment [Unknown]
